FAERS Safety Report 9742681 (Version 1)
Quarter: 2013Q4

REPORT INFORMATION
  Report Type: Spontaneous
  Country: US (occurrence: US)
  Receive Date: 20131210
  Receipt Date: 20131210
  Transmission Date: 20140711
  Serious: No
  Sender: FDA-Public Use
  Company Number: US-GILEAD-2009-0025410

PATIENT
  Sex: Female
  Weight: 65.32 kg

DRUGS (8)
  1. LETAIRIS [Suspect]
     Indication: PULMONARY ARTERIAL HYPERTENSION
     Route: 048
     Dates: start: 20090425
  2. AMLODIPINE BESYLATE [Concomitant]
  3. FOSAMAX [Concomitant]
  4. HYDROCORTISONE [Concomitant]
  5. LEVOTHYROXINE [Concomitant]
  6. DIOVAN [Concomitant]
  7. TYLENOL ARTHRITIS [Concomitant]
  8. FLUDROCORTISONE [Concomitant]

REACTIONS (1)
  - Urine odour abnormal [Unknown]
